FAERS Safety Report 16314467 (Version 1)
Quarter: 2019Q2

REPORT INFORMATION
  Report Type: Spontaneous
  Country: US (occurrence: US)
  Receive Date: 20190409
  Receipt Date: 20190409
  Transmission Date: 20190711
  Serious: Yes (Disabling, Other)
  Sender: FDA-Public Use
  Company Number: None

PATIENT
  Age: 62 Year
  Sex: Male
  Weight: 89.36 kg

DRUGS (12)
  1. RICATRIPTAN [Concomitant]
  2. CITRIZINE HYDROCHLORIDE [Concomitant]
  3. BUTALBATROL APAP CAFFEIN [Concomitant]
  4. AIMOVIG [Suspect]
     Active Substance: ERENUMAB-AOOE
     Indication: MIGRAINE
     Dosage: ?          QUANTITY:2 DF DOSAGE FORM;?
     Route: 058
     Dates: start: 20181120
  5. NORTIPRLYLINE [Concomitant]
  6. METHYLFOLATE [Concomitant]
     Active Substance: LEVOMEFOLATE CALCIUM
  7. VITAMIN B12 (METHYLCOBALAMIN) [Concomitant]
  8. VITAMIN D3 [Concomitant]
     Active Substance: CHOLECALCIFEROL
  9. CLONOZAPAM [Concomitant]
     Active Substance: CLONAZEPAM
  10. MAGNESIUM GLYCINATE [Concomitant]
     Active Substance: MAGNESIUM GLYCINATE
  11. VITAMIN E [Concomitant]
     Active Substance: .ALPHA.-TOCOPHEROL
  12. VITAMIN C [Concomitant]
     Active Substance: ASCORBIC ACID

REACTIONS (2)
  - Insomnia [None]
  - Migraine [None]

NARRATIVE: CASE EVENT DATE: 20190401
